FAERS Safety Report 5501561-1 (Version None)
Quarter: 2007Q4

REPORT INFORMATION
  Report Type: 
  Country: None (occurrence: None)
  Receive Date: 20071022
  Receipt Date: 20070808
  Transmission Date: 20080405
  Serious: No
  Sender: FDA-Public Use
  Company Number: SPV1-2007-03799

PATIENT
  Age: 9 Year
  Sex: Male
  Weight: 25.9 kg

DRUGS (1)
  1. VYVANSE [Suspect]
     Indication: ATTENTION DEFICIT/HYPERACTIVITY DISORDER
     Dosage: 30 MG, 1X/DAY,QD; ORAL
     Route: 048
     Dates: start: 20070806, end: 20070808

REACTIONS (5)
  - ABDOMINAL PAIN UPPER [None]
  - INSOMNIA [None]
  - IRRITABILITY [None]
  - LOGORRHOEA [None]
  - TREMOR [None]
